FAERS Safety Report 12304819 (Version 1)
Quarter: 2016Q2

REPORT INFORMATION
  Report Type: Spontaneous
  Country: US (occurrence: None)
  Receive Date: 20160425
  Receipt Date: 20160425
  Transmission Date: 20160815
  Serious: Yes (Life-Threatening, Hospitalization)
  Sender: FDA-Public Use
  Company Number: None

PATIENT
  Age: 26 Year
  Sex: Female
  Weight: 72.72 kg

DRUGS (2)
  1. CUBICIN [Suspect]
     Active Substance: DAPTOMYCIN
     Indication: STAPHYLOCOCCAL INFECTION
     Dosage: 440MG/50ML
     Route: 042
     Dates: start: 20160322, end: 20160330
  2. CUBICIN [Suspect]
     Active Substance: DAPTOMYCIN
     Indication: ARTHRITIS INFECTIVE
     Dosage: 440MG/50ML
     Route: 042
     Dates: start: 20160322, end: 20160330

REACTIONS (2)
  - Blood creatine phosphokinase increased [None]
  - Pain in extremity [None]

NARRATIVE: CASE EVENT DATE: 20160328
